FAERS Safety Report 5239343-0 (Version None)
Quarter: 2007Q1

REPORT INFORMATION
  Report Type: 
  Country: None (occurrence: None)
  Receive Date: 20070214
  Receipt Date: 20070214
  Transmission Date: 20070707
  Serious: No
  Sender: FDA-Public Use
  Company Number: None

PATIENT
  Sex: Female
  Weight: 73 kg

DRUGS (3)
  1. DOXORUBICIN HYDROCHLORIDE [Suspect]
     Dosage: 46 MG
  2. GEMCITABINE HCL [Suspect]
     Dosage: 1472 MG
  3. VINBLASTINE SULFATE [Suspect]
     Dosage: 11 MG

REACTIONS (1)
  - NEUTROPHIL COUNT DECREASED [None]
